FAERS Safety Report 8017661-0 (Version None)
Quarter: 2012Q1

REPORT INFORMATION
  Report Type: 
  Country: None (occurrence: None)
  Receive Date: 20120103
  Receipt Date: 20111220
  Transmission Date: 20120608
  Serious: Yes (Other)
  Sender: FDA-Public Use
  Company Number: US-JNJFOC-20111209084

PATIENT
  Sex: Female
  Weight: 66.68 kg

DRUGS (5)
  1. ZITHROMAX [Suspect]
     Indication: BRONCHITIS
     Route: 048
     Dates: start: 20111101, end: 20111101
  2. EVISTA [Concomitant]
     Indication: OSTEOPOROSIS PROPHYLAXIS
     Route: 048
     Dates: start: 20010101
  3. EVISTA [Concomitant]
     Indication: BREAST CANCER
     Route: 048
     Dates: start: 20010101
  4. METHOTREXATE [Concomitant]
     Indication: RHEUMATOID ARTHRITIS
     Route: 048
     Dates: start: 20090101
  5. REMICADE [Suspect]
     Indication: RHEUMATOID ARTHRITIS
     Dosage: EVERY 8 OR 9 WEEK
     Route: 042
     Dates: start: 20100101

REACTIONS (2)
  - NEPHROLITHIASIS [None]
  - BRONCHITIS [None]
